FAERS Safety Report 14526067 (Version 1)
Quarter: 2018Q1

REPORT INFORMATION
  Report Type: Spontaneous
  Country: LB (occurrence: LB)
  Receive Date: 20180213
  Receipt Date: 20180213
  Transmission Date: 20180509
  Serious: Yes (Other)
  Sender: FDA-Public Use
  Company Number: LB-BAYER-2018-022034

PATIENT
  Age: 49 Year
  Sex: Female

DRUGS (10)
  1. RITUXIMAB. [Concomitant]
     Active Substance: RITUXIMAB
     Dosage: WEEKLY
  2. CYCLOPHOSPHAMIDE. [Concomitant]
     Active Substance: CYCLOPHOSPHAMIDE
     Dosage: 50 MG/KG, QD
  3. CYCLOSPORINE. [Concomitant]
     Active Substance: CYCLOSPORINE
  4. SORAFENIB (RAF KINASE INHIBITOR) [Suspect]
     Active Substance: SORAFENIB
     Indication: PROGRESSIVE MULTIFOCAL LEUKOENCEPHALOPATHY
     Dosage: 400 MG, BID
     Route: 048
  5. THIOTEPA. [Concomitant]
     Active Substance: THIOTEPA
     Dosage: 5 MG/KG, UNK
  6. UROMITEXAN [Concomitant]
     Active Substance: MESNA
  7. VALGANCICLOVIR HYDROCHLORIDE. [Concomitant]
     Active Substance: VALGANCICLOVIR HYDROCHLORIDE
  8. MYCOPHENOLATE MOFETIL. [Concomitant]
     Active Substance: MYCOPHENOLATE MOFETIL
     Indication: PROPHYLAXIS AGAINST GRAFT VERSUS HOST DISEASE
  9. SORAFENIB (RAF KINASE INHIBITOR) [Suspect]
     Active Substance: SORAFENIB
     Indication: ACUTE MYELOID LEUKAEMIA
     Dosage: UNK
     Route: 048
  10. AZACITIDINE. [Concomitant]
     Active Substance: AZACITIDINE
     Dosage: 32 MG/M2, QD

REACTIONS (3)
  - Product use in unapproved indication [None]
  - Off label use [None]
  - Haematotoxicity [None]
